FAERS Safety Report 13274814 (Version 2)
Quarter: 2017Q1

REPORT INFORMATION
  Report Type: Spontaneous
  Country: JP (occurrence: JP)
  Receive Date: 20170227
  Receipt Date: 20170310
  Transmission Date: 20170428
  Serious: Yes (Hospitalization, Other)
  Sender: FDA-Public Use
  Company Number: JP-ELI_LILLY_AND_COMPANY-JP201702008178

PATIENT
  Age: 25 Year
  Sex: Male
  Weight: 94 kg

DRUGS (7)
  1. CYMBALTA [Suspect]
     Active Substance: DULOXETINE HYDROCHLORIDE
     Indication: PRODUCT USED FOR UNKNOWN INDICATION
     Route: 048
  2. FAMOTIDINE. [Concomitant]
     Active Substance: FAMOTIDINE
  3. FLUNITRAZEPAM [Concomitant]
     Active Substance: FLUNITRAZEPAM
  4. LIMAS [Concomitant]
     Active Substance: LITHIUM CARBONATE
  5. TOFRANIL [Concomitant]
     Active Substance: IMIPRAMINE HYDROCHLORIDE
  6. WYPAX [Concomitant]
     Active Substance: LORAZEPAM
  7. QUETIAPINE. [Concomitant]
     Active Substance: QUETIAPINE

REACTIONS (7)
  - Pneumonia aspiration [Unknown]
  - Disseminated intravascular coagulation [Unknown]
  - Altered state of consciousness [Recovering/Resolving]
  - Intensive care unit acquired weakness [Unknown]
  - Septic shock [Unknown]
  - Neuroleptic malignant syndrome [Unknown]
  - Suicide attempt [Unknown]
